FAERS Safety Report 13546533 (Version 1)
Quarter: 2017Q2

REPORT INFORMATION
  Report Type: Spontaneous
  Country: US (occurrence: US)
  Receive Date: 20170515
  Receipt Date: 20170515
  Transmission Date: 20170830
  Serious: Yes (Other)
  Sender: FDA-Public Use
  Company Number: None

PATIENT
  Age: 60 Year
  Sex: Female
  Weight: 70.2 kg

DRUGS (9)
  1. BACLEFIN [Concomitant]
  2. HYDROCODONE [Concomitant]
     Active Substance: HYDROCODONE
  3. PROZAC [Concomitant]
     Active Substance: FLUOXETINE HYDROCHLORIDE
  4. METFORMAN [Concomitant]
  5. ASPRIN [Concomitant]
     Active Substance: ASPIRIN
  6. BUSPAR [Concomitant]
     Active Substance: BUSPIRONE HYDROCHLORIDE
  7. ABILIFY [Suspect]
     Active Substance: ARIPIPRAZOLE
     Indication: BIPOLAR DISORDER
     Dosage: ?          QUANTITY:30 TABLET(S);?
     Route: 048
     Dates: start: 20150102, end: 20170514
  8. ESTRODIAL [Concomitant]
     Active Substance: ESTRADIOL
  9. XANEX [Concomitant]

REACTIONS (1)
  - Alopecia [None]

NARRATIVE: CASE EVENT DATE: 20150102
